FAERS Safety Report 9670833 (Version 5)
Quarter: 2013Q4

REPORT INFORMATION
  Report Type: Spontaneous
  Country: US (occurrence: US)
  Receive Date: 20131106
  Receipt Date: 20131209
  Transmission Date: 20140711
  Serious: Yes (Hospitalization)
  Sender: FDA-Public Use
  Company Number: US-JNJFOC-20131018216

PATIENT
  Sex: Female
  Weight: 52.16 kg

DRUGS (2)
  1. XARELTO [Suspect]
     Indication: CEREBROVASCULAR ACCIDENT PROPHYLAXIS
     Route: 048
     Dates: start: 2013, end: 2013
  2. XARELTO [Suspect]
     Indication: ATRIAL FIBRILLATION
     Route: 048
     Dates: start: 2013, end: 2013

REACTIONS (5)
  - Fall [Unknown]
  - Haemorrhage [Recovered/Resolved]
  - Joint injury [Unknown]
  - Haemarthrosis [Unknown]
  - Joint injury [Not Recovered/Not Resolved]
